FAERS Safety Report 4406657-3 (Version None)
Quarter: 2004Q3

REPORT INFORMATION
  Report Type: 
  Country: None (occurrence: None)
  Receive Date: 20040720
  Receipt Date: 20040716
  Transmission Date: 20050211
  Serious: Yes (Disabling)
  Sender: FDA-Public Use
  Company Number: THQ2004A00667

PATIENT
  Age: 50 Year
  Sex: Male

DRUGS (1)
  1. LANSOPRAZOLE [Suspect]
     Indication: DYSPEPSIA
     Dosage: 15 MG (1 D) PER ORAL
     Route: 048
     Dates: start: 19950101, end: 20030101

REACTIONS (3)
  - ERECTILE DYSFUNCTION [None]
  - GYNAECOMASTIA [None]
  - OCULAR ICTERUS [None]
